FAERS Safety Report 8021341-5 (Version None)
Quarter: 2012Q1

REPORT INFORMATION
  Report Type: 
  Country: None (occurrence: None)
  Receive Date: 20120104
  Receipt Date: 20111223
  Transmission Date: 20120608
  Serious: Yes (Hospitalization)
  Sender: FDA-Public Use
  Company Number: US-BAYER-2011-014778

PATIENT
  Age: 27 Year
  Sex: Female
  Weight: 54.23 kg

DRUGS (6)
  1. YAZ [Suspect]
  2. ZOMIG [Concomitant]
     Dosage: UNK
     Route: 048
     Dates: start: 20090101
  3. BUTALBITAL-APAP [Concomitant]
     Dosage: UNK
     Route: 048
     Dates: start: 20060506
  4. YAZ [Suspect]
     Indication: CONTRACEPTION
     Dosage: UNK
     Route: 048
     Dates: start: 20090301, end: 20091201
  5. FIORICET [Concomitant]
     Dosage: UNK
     Route: 048
     Dates: start: 20090101
  6. CIPROFLOXACIN HCL [Concomitant]
     Dosage: 500 MG, UNK
     Route: 048
     Dates: start: 20090506

REACTIONS (6)
  - CHOLECYSTITIS CHRONIC [None]
  - VOMITING [None]
  - DIARRHOEA [None]
  - ABDOMINAL PAIN [None]
  - GALLBLADDER DISORDER [None]
  - NAUSEA [None]
